FAERS Safety Report 8465562-6 (Version None)
Quarter: 2012Q2

REPORT INFORMATION
  Report Type: 
  Country: None (occurrence: None)
  Receive Date: 20120618
  Receipt Date: 20120606
  Transmission Date: 20120825
  Serious: Yes (Other)
  Sender: FDA-Public Use
  Company Number: MCA-N-12-062

PATIENT
  Age: 55 Year
  Sex: Male

DRUGS (3)
  1. FLUOXETINE [Concomitant]
  2. DIAZEPAM [Concomitant]
  3. OLANZAPINE [Suspect]
     Indication: SCHIZOPHRENIA
     Dosage: 15 MG, QD

REACTIONS (6)
  - EXCORIATION [None]
  - DRUG ERUPTION [None]
  - RASH PRURITIC [None]
  - RASH ERYTHEMATOUS [None]
  - EXFOLIATIVE RASH [None]
  - SKIN HYPERPIGMENTATION [None]
